FAERS Safety Report 7063022-0 (Version None)
Quarter: 2010Q4

REPORT INFORMATION
  Report Type: 
  Country: None (occurrence: None)
  Receive Date: 20101026
  Receipt Date: 20100308
  Transmission Date: 20110411
  Serious: No
  Sender: FDA-Public Use
  Company Number: US-PFIZER INC-2010029968

PATIENT
  Sex: Male

DRUGS (2)
  1. LIPITOR [Suspect]
     Indication: CORONARY ARTERIAL STENT INSERTION
     Dosage: 80 MG, 1X/DAY
     Route: 048
     Dates: start: 20100213
  2. PLAVIX [Concomitant]
     Dosage: UNK
     Route: 048

REACTIONS (1)
  - MEDICATION RESIDUE [None]
